FAERS Safety Report 4634901-6 (Version None)
Quarter: 2005Q2

REPORT INFORMATION
  Report Type: 
  Country: None (occurrence: None)
  Receive Date: 20050414
  Receipt Date: 20050405
  Transmission Date: 20051028
  Serious: Yes (Hospitalization, Other)
  Sender: FDA-Public Use
  Company Number: 200513018GDDC

PATIENT
  Sex: Female

DRUGS (2)
  1. ARAVA [Suspect]
     Indication: RHEUMATOID ARTHRITIS
     Route: 048
  2. METHYLPREDNISOLONE [Concomitant]
     Route: 051
     Dates: start: 20041201, end: 20050101

REACTIONS (4)
  - ALOPECIA [None]
  - MOUTH ULCERATION [None]
  - SWELLING FACE [None]
  - SWOLLEN TONGUE [None]
